FAERS Safety Report 4395097-1 (Version None)
Quarter: 2004Q3

REPORT INFORMATION
  Report Type: 
  Country: None (occurrence: None)
  Receive Date: 20040707
  Receipt Date: 20040621
  Transmission Date: 20050211
  Serious: Yes (Life-Threatening, Hospitalization)
  Sender: FDA-Public Use
  Company Number: 2004CG00903

PATIENT
  Age: 79 Year
  Sex: Male
  Weight: 95 kg

DRUGS (11)
  1. IRESSA [Suspect]
     Indication: LUNG NEOPLASM MALIGNANT
     Dosage: 250 MG DAILY PO
     Route: 048
     Dates: start: 20040115, end: 20040506
  2. DOCETAXEL [Suspect]
     Indication: LUNG NEOPLASM MALIGNANT
     Dates: start: 20040115, end: 20040429
  3. CORDARONE [Suspect]
     Indication: ANGINA PECTORIS
     Dosage: 200 MG DAILY PO
     Route: 048
     Dates: start: 20020101, end: 20040511
  4. ASPEGIC 325 [Concomitant]
  5. RIVOTRIL [Concomitant]
  6. MODURETIC 5-50 [Concomitant]
  7. TAHOR [Concomitant]
  8. TRIATEC [Concomitant]
  9. MEDROL [Concomitant]
  10. ZOPHREN [Concomitant]
  11. TARDYFERON [Concomitant]

REACTIONS (4)
  - ANAEMIA [None]
  - INTERSTITIAL LUNG DISEASE [None]
  - LEUKOPENIA [None]
  - NEUTROPENIA [None]
